FAERS Safety Report 22638804 (Version 5)
Quarter: 2023Q4

REPORT INFORMATION
  Report Type: Spontaneous
  Country: US (occurrence: US)
  Receive Date: 20230626
  Receipt Date: 20231124
  Transmission Date: 20240110
  Serious: No
  Sender: FDA-Public Use
  Company Number: US-SA-SAC20230620001308

PATIENT
  Sex: Male
  Weight: 68.94 kg

DRUGS (3)
  1. DUPILUMAB [Suspect]
     Active Substance: DUPILUMAB
     Indication: Dermatitis atopic
     Dosage: 300 MG, QOW
     Route: 058
  2. ASPIRIN [Concomitant]
     Active Substance: ASPIRIN
  3. EPIPEN [Concomitant]
     Active Substance: EPINEPHRINE

REACTIONS (12)
  - Asthenia [Unknown]
  - Feeling abnormal [Unknown]
  - Urine abnormality [Unknown]
  - Impaired work ability [Unknown]
  - Chromaturia [Unknown]
  - Renal pain [Unknown]
  - Weight decreased [Unknown]
  - Visual impairment [Unknown]
  - Disturbance in attention [Unknown]
  - Vision blurred [Unknown]
  - Insomnia [Unknown]
  - Therapeutic product effect decreased [Unknown]
